FAERS Safety Report 25504720 (Version 1)
Quarter: 2025Q3

REPORT INFORMATION
  Report Type: Report from Study
  Country: CA (occurrence: CA)
  Receive Date: 20250702
  Receipt Date: 20250702
  Transmission Date: 20251021
  Serious: Yes (Other)
  Sender: TAKEDA
  Company Number: CA-TAKEDA-2025TUS057609

PATIENT
  Age: 79 Year
  Sex: Female

DRUGS (10)
  1. VEDOLIZUMAB [Suspect]
     Active Substance: VEDOLIZUMAB
     Indication: Colitis microscopic
  2. BUDESONIDE [Concomitant]
     Active Substance: BUDESONIDE
  3. MESALAMINE [Concomitant]
     Active Substance: MESALAMINE
     Dosage: UNK UNK, QD
     Dates: start: 202307
  4. CANDESARTAN [Concomitant]
     Active Substance: CANDESARTAN
  5. FEBUXOSTAT [Concomitant]
     Active Substance: FEBUXOSTAT
  6. OMEPRAZOLE [Concomitant]
     Active Substance: OMEPRAZOLE
  7. ASPIRIN [Concomitant]
     Active Substance: ASPIRIN
  8. ALBUTEROL [Concomitant]
     Active Substance: ALBUTEROL
  9. CANNABIDIOL [Concomitant]
     Active Substance: CANNABIDIOL
  10. RABEPRAZOLE [Concomitant]
     Active Substance: RABEPRAZOLE

REACTIONS (2)
  - Atrial fibrillation [Unknown]
  - Off label use [Unknown]

NARRATIVE: CASE EVENT DATE: 20231216
